FAERS Safety Report 7544164-X (Version None)
Quarter: 2011Q2

REPORT INFORMATION
  Report Type: 
  Country: None (occurrence: None)
  Receive Date: 20110613
  Receipt Date: 20070124
  Transmission Date: 20111010
  Serious: Yes (Death, Hospitalization, Other)
  Sender: FDA-Public Use
  Company Number: PHHO2005GB14931

PATIENT
  Sex: Male

DRUGS (7)
  1. LANSOPRAZOLE [Concomitant]
     Dosage: 30 MG, QD
     Dates: start: 20050819
  2. DICLOFENAC SODIUM [Concomitant]
     Indication: PAIN
     Dosage: 50 MG, TID
     Dates: start: 20050729
  3. ORAMORPH SR [Concomitant]
     Indication: PAIN
     Dosage: 5 ML, Q4H
     Dates: start: 20050812
  4. ZOLEDRONIC ACID [Suspect]
     Indication: METASTASES TO BONE
     Dosage: 4 MG, QMO
     Route: 042
     Dates: start: 20050603
  5. ACETAMINOPHEN [Concomitant]
     Indication: PAIN
     Dosage: 1000 MG, QD
     Dates: start: 20050812
  6. CALCIUM CARBONATE [Concomitant]
  7. VITAMIN D [Concomitant]

REACTIONS (6)
  - PATHOLOGICAL FRACTURE [None]
  - INTERVERTEBRAL DISC DEGENERATION [None]
  - NERVE ROOT COMPRESSION [None]
  - DEATH [None]
  - METASTASIS [None]
  - ARTHRALGIA [None]
